FAERS Safety Report 7235250-2 (Version None)
Quarter: 2011Q1

REPORT INFORMATION
  Report Type: 
  Country: None (occurrence: None)
  Receive Date: 20110120
  Receipt Date: 20110111
  Transmission Date: 20110831
  Serious: No
  Sender: FDA-Public Use
  Company Number: US-JNJFOC-20110103041

PATIENT
  Sex: Male
  Weight: 102.06 kg

DRUGS (5)
  1. MORPHINE SULFATE [Concomitant]
     Indication: BREAKTHROUGH PAIN
     Route: 048
  2. KLONOPIN [Concomitant]
     Indication: OESOPHAGEAL DISORDER
     Route: 048
  3. FENTANYL-100 [Suspect]
     Route: 062
  4. FENTANYL-100 [Suspect]
     Indication: PAIN IN EXTREMITY
     Route: 062
  5. FENTANYL-100 [Suspect]
     Indication: PAIN
     Route: 062

REACTIONS (11)
  - PRODUCT ADHESION ISSUE [None]
  - APPLICATION SITE REACTION [None]
  - WRONG TECHNIQUE IN DRUG USAGE PROCESS [None]
  - APPLICATION SITE PAIN [None]
  - DERMATITIS CONTACT [None]
  - FEELING ABNORMAL [None]
  - DRUG INEFFECTIVE [None]
  - APPLICATION SITE PARAESTHESIA [None]
  - PRODUCT ODOUR ABNORMAL [None]
  - APPLICATION SITE URTICARIA [None]
  - TINNITUS [None]
